FAERS Safety Report 25166072 (Version 1)
Quarter: 2025Q2

REPORT INFORMATION
  Report Type: Spontaneous
  Country: US (occurrence: US)
  Receive Date: 20250407
  Receipt Date: 20250407
  Transmission Date: 20250716
  Serious: Yes (Life-Threatening, Hospitalization)
  Sender: BAUSCH AND LOMB
  Company Number: US-BAUSCH-BL-2025-004512

PATIENT
  Age: 21 Year
  Sex: Male

DRUGS (1)
  1. BUPROPION [Suspect]
     Active Substance: BUPROPION
     Indication: Product used for unknown indication
     Route: 065

REACTIONS (6)
  - Cardiogenic shock [Recovered/Resolved]
  - Areflexia [Recovered/Resolved]
  - Motor dysfunction [Recovered/Resolved]
  - Mydriasis [Recovered/Resolved]
  - Myoclonus [Recovered/Resolved]
  - Intentional overdose [Unknown]
